FAERS Safety Report 7953636-5 (Version None)
Quarter: 2011Q4

REPORT INFORMATION
  Report Type: 
  Country: None (occurrence: None)
  Receive Date: 20111129
  Receipt Date: 20111114
  Transmission Date: 20120403
  Serious: Yes (Hospitalization, Other)
  Sender: FDA-Public Use
  Company Number: 2011P1010624

PATIENT
  Age: 80 Year
  Sex: Male

DRUGS (1)
  1. AMIODARONE HCL [Suspect]
     Dosage: 200 MG;QD

REACTIONS (5)
  - ATRIAL FLUTTER [None]
  - DYSPNOEA [None]
  - HYPERTHERMIA [None]
  - THYROTOXIC CRISIS [None]
  - HYPERTHYROIDISM [None]
